FAERS Safety Report 9231041 (Version 1)
Quarter: 2013Q2

REPORT INFORMATION
  Report Type: Report from Study
  Country: ES (occurrence: ES)
  Receive Date: 20130415
  Receipt Date: 20130415
  Transmission Date: 20140414
  Serious: Yes (Life-Threatening, Hospitalization)
  Sender: FDA-Public Use
  Company Number: ES-ROCHE-1209837

PATIENT
  Age: 68 Year
  Sex: Male

DRUGS (6)
  1. CELLCEPT [Suspect]
     Indication: RENAL TRANSPLANT
     Route: 048
     Dates: start: 2011
  2. AMIODARONA [Interacting]
     Indication: ATRIAL FIBRILLATION
     Route: 048
     Dates: start: 2011
  3. ALDOCUMAR [Interacting]
     Indication: ATRIAL FIBRILLATION
     Route: 048
     Dates: start: 2011, end: 20120522
  4. PREDNISONE [Concomitant]
     Indication: RENAL TRANSPLANT
     Route: 048
     Dates: start: 201110, end: 20120522
  5. EPLERENONA [Concomitant]
     Indication: CARDIAC FAILURE
     Route: 048
     Dates: start: 201203, end: 20120522
  6. SANDIMMUN NEORAL [Concomitant]
     Indication: RENAL TRANSPLANT
     Route: 048
     Dates: start: 2011

REACTIONS (3)
  - Haematuria [Recovered/Resolved]
  - Epistaxis [Recovered/Resolved]
  - International normalised ratio increased [Recovered/Resolved]
